FAERS Safety Report 6112126-5 (Version None)
Quarter: 2009Q1

REPORT INFORMATION
  Report Type: 
  Country: None (occurrence: None)
  Receive Date: 20090311
  Receipt Date: 20090305
  Transmission Date: 20090719
  Serious: Yes (Hospitalization)
  Sender: FDA-Public Use
  Company Number: JP-MERCK-0903USA01022

PATIENT
  Age: 36 Year
  Sex: Female

DRUGS (5)
  1. FOSAMAX [Suspect]
     Indication: OSTEOPOROSIS
     Route: 048
     Dates: start: 20090217, end: 20090301
  2. PEPCID [Suspect]
     Indication: DYSPEPSIA
     Route: 048
     Dates: start: 20090217, end: 20090301
  3. BAKTAR [Suspect]
     Indication: INFECTION PROPHYLAXIS
     Route: 048
     Dates: start: 20090217, end: 20090301
  4. WARFARIN POTASSIUM [Suspect]
     Indication: IMMUNOSUPPRESSION
     Route: 048
     Dates: start: 20090217, end: 20090301
  5. HORMONES (UNSPECIFIED) [Concomitant]
     Route: 065
     Dates: start: 20090217

REACTIONS (1)
  - DRUG ERUPTION [None]
